FAERS Safety Report 16689170 (Version 1)
Quarter: 2019Q3

REPORT INFORMATION
  Report Type: Spontaneous
  Country: US (occurrence: US)
  Receive Date: 20190809
  Receipt Date: 20190809
  Transmission Date: 20191004
  Serious: No
  Sender: FDA-Public Use
  Company Number: US-009507513-1907USA014888

PATIENT
  Age: 69 Year
  Sex: Male

DRUGS (3)
  1. ZERIT [Concomitant]
     Active Substance: STAVUDINE
  2. ASPIRIN. [Concomitant]
     Active Substance: ASPIRIN
  3. INTRON A [Suspect]
     Active Substance: INTERFERON ALFA-2B
     Indication: CARCINOID TUMOUR
     Dosage: 0.05 ML, TIW(STRENGTH: 18 MU MDV)
     Route: 023
     Dates: start: 201907

REACTIONS (1)
  - Off label use [Unknown]

NARRATIVE: CASE EVENT DATE: 201907
